FAERS Safety Report 11627197 (Version 2)
Quarter: 2016Q1

REPORT INFORMATION
  Report Type: Spontaneous
  Country: US (occurrence: US)
  Receive Date: 20151013
  Receipt Date: 20160205
  Transmission Date: 20160525
  Serious: No
  Sender: FDA-Public Use
  Company Number: US-AMGEN-USASP2015017196

PATIENT

DRUGS (19)
  1. CYTOXAN [Concomitant]
     Active Substance: CYCLOPHOSPHAMIDE
     Dosage: UNK
     Dates: start: 20021001
  2. AFINITOR [Concomitant]
     Active Substance: EVEROLIMUS
     Dosage: UNK
     Dates: start: 20130801
  3. FLUOROURACIL. [Concomitant]
     Active Substance: FLUOROURACIL
     Dosage: UNK
     Dates: start: 20070601
  4. FEMARA [Concomitant]
     Active Substance: LETROZOLE
     Dosage: UNK
     Dates: start: 20100601
  5. XELODA [Concomitant]
     Active Substance: CAPECITABINE
     Dosage: UNK
     Dates: start: 20110901
  6. AVASTIN [Concomitant]
     Active Substance: BEVACIZUMAB
     Dosage: UNK
     Dates: start: 20090901
  7. FASLODEX [Concomitant]
     Active Substance: FULVESTRANT
     Dosage: UNK
     Dates: start: 20120101
  8. GEMZAR [Concomitant]
     Active Substance: GEMCITABINE HYDROCHLORIDE
     Dosage: UNK
     Dates: start: 20130501
  9. TAXOTERE [Concomitant]
     Active Substance: DOCETAXEL
     Dosage: UNK
     Dates: start: 20141112
  10. NEULASTA [Suspect]
     Active Substance: PEGFILGRASTIM
     Indication: PRODUCT USED FOR UNKNOWN INDICATION
     Dosage: UNK
     Route: 065
  11. NEUPOGEN [Suspect]
     Active Substance: FILGRASTIM
     Indication: BLOOD COUNT ABNORMAL
     Dosage: UNK
     Route: 065
  12. ABRAXANE [Concomitant]
     Active Substance: PACLITAXEL
     Dosage: UNK
     Dates: start: 20090901
  13. TAXOL [Concomitant]
     Active Substance: PACLITAXEL
     Dosage: UNK
     Dates: start: 20030101
  14. METHOTREXATE [Concomitant]
     Active Substance: METHOTREXATE
     Dosage: UNK
     Dates: start: 20070601
  15. AROMASIN [Concomitant]
     Active Substance: EXEMESTANE
     Dosage: UNK
     Dates: start: 20130601
  16. ADRIAMYCIN [Concomitant]
     Active Substance: DOXORUBICIN HYDROCHLORIDE
     Dosage: UNK
     Dates: start: 20021001
  17. TAMOXIFEN [Concomitant]
     Active Substance: TAMOXIFEN
     Dosage: UNK
     Dates: start: 20030501
  18. NAVELBINE [Concomitant]
     Active Substance: VINORELBINE TARTRATE
     Dosage: UNK
     Dates: start: 20120601
  19. HALAVEN [Concomitant]
     Active Substance: ERIBULIN MESYLATE
     Dosage: UNK
     Dates: start: 20131028

REACTIONS (3)
  - Alopecia [Unknown]
  - Pain [Unknown]
  - Neuropathy peripheral [Unknown]
